FAERS Safety Report 6497836-2 (Version None)
Quarter: 2009Q4

REPORT INFORMATION
  Report Type: 
  Country: None (occurrence: None)
  Receive Date: 20091125
  Receipt Date: 20090225
  Transmission Date: 20100525
  Serious: Yes (Other)
  Sender: FDA-Public Use
  Company Number: 2009BH003203

PATIENT
  Age: 53 Year
  Sex: Male

DRUGS (1)
  1. DIANEAL [Suspect]
     Indication: PERITONEAL DIALYSIS
     Dosage: 20 L;EVERY DAY;IP
     Route: 033

REACTIONS (4)
  - ASTHENIA [None]
  - FATIGUE [None]
  - PERITONEAL CLOUDY EFFLUENT [None]
  - PYREXIA [None]
